FAERS Safety Report 19679167 (Version 1)
Quarter: 2021Q3

REPORT INFORMATION
  Report Type: Spontaneous
  Country: BH (occurrence: BH)
  Receive Date: 20210809
  Receipt Date: 20210809
  Transmission Date: 20211014
  Serious: Yes (Hospitalization, Other)
  Sender: FDA-Public Use
  Company Number: BH-MALLINCKRODT PHARMACEUTICALS-T202103551

PATIENT
  Age: 52 Year
  Sex: Female

DRUGS (19)
  1. CEFTRIAXONE. [Suspect]
     Active Substance: CEFTRIAXONE
     Indication: COVID-19 PNEUMONIA
     Dosage: 2000 MILLIGRAM, QD
     Route: 042
  2. PANTOPRAZOLE [Concomitant]
     Active Substance: PANTOPRAZOLE
     Indication: COVID-19 PNEUMONIA
     Dosage: UNK
     Route: 065
  3. OFIRMEV [Suspect]
     Active Substance: ACETAMINOPHEN
     Indication: COVID-19 PNEUMONIA
     Dosage: 1000 MILLIGRAM, Q6H (AS NEEDED)
     Route: 042
  4. OMEPRAZOLE. [Suspect]
     Active Substance: OMEPRAZOLE
     Indication: COVID-19 PNEUMONIA
     Dosage: 20 MILLIGRAM, Q12H
     Route: 042
  5. AZITHROMYCIN ANHYDROUS. [Concomitant]
     Active Substance: AZITHROMYCIN ANHYDROUS
     Indication: COVID-19 PNEUMONIA
     Dosage: UNK
     Route: 065
  6. IPRATROPIUM BROMIDE. [Concomitant]
     Active Substance: IPRATROPIUM BROMIDE
     Indication: COVID-19 PNEUMONIA
     Dosage: UNK
     Route: 065
  7. DEXAMETHASONE. [Suspect]
     Active Substance: DEXAMETHASONE
     Dosage: 6 MILLIGRAM, QD
     Route: 048
  8. DOXYCYCLINE. [Suspect]
     Active Substance: DOXYCYCLINE
     Indication: COVID-19 PNEUMONIA
     Dosage: 100 MILLIGRAM, Q12H
     Route: 048
  9. OXYGEN. [Concomitant]
     Active Substance: OXYGEN
     Indication: COVID-19 PNEUMONIA
     Dosage: UNK (INHALATION)
     Route: 055
  10. ENOXAPARIN [Concomitant]
     Active Substance: ENOXAPARIN
     Indication: COVID-19 PNEUMONIA
     Dosage: UNK
     Route: 065
  11. METOCLOPRAMIDE. [Concomitant]
     Active Substance: METOCLOPRAMIDE
     Indication: COVID-19 PNEUMONIA
     Dosage: UNK
     Route: 065
  12. FLUTICASONE FUROATE;VILANTEROL [Concomitant]
     Active Substance: FLUTICASONE FUROATE\VILANTEROL TRIFENATATE
     Indication: COVID-19 PNEUMONIA
     Dosage: UNK
     Route: 065
  13. METHYLPREDNISOLONE. [Concomitant]
     Active Substance: METHYLPREDNISOLONE
     Indication: COVID-19 PNEUMONIA
     Dosage: 6 MILLIGRAM, QD FOR 2 DAYS
     Route: 065
  14. ZINC GLUCONATE [Concomitant]
     Active Substance: ZINC GLUCONATE
     Indication: COVID-19 PNEUMONIA
     Dosage: UNK
     Route: 065
  15. DEXAMETHASONE. [Suspect]
     Active Substance: DEXAMETHASONE
     Indication: COVID-19 PNEUMONIA
     Dosage: 6 MILLIGRAM, QD
     Route: 042
  16. OMEPRAZOLE. [Suspect]
     Active Substance: OMEPRAZOLE
     Dosage: 20 MG INTRAVENOUSLY TWO TIMES PER DAY/20 MG PER ORAL TWO TIMES PER DAY
     Route: 065
  17. PARACETAMOL [Suspect]
     Active Substance: ACETAMINOPHEN
     Indication: COVID-19 PNEUMONIA
     Dosage: 1000 MILLIGRAM, Q6H (AS NEEDED)
     Route: 048
  18. SALBUTAMOL [Concomitant]
     Active Substance: ALBUTEROL
     Indication: COVID-19 PNEUMONIA
     Dosage: UNK
     Route: 065
  19. CHOLECALCIFEROL [Concomitant]
     Active Substance: CHOLECALCIFEROL
     Indication: COVID-19 PNEUMONIA
     Dosage: UNK
     Route: 065

REACTIONS (1)
  - Pancreatitis acute [Recovering/Resolving]
